FAERS Safety Report 5310152-7 (Version None)
Quarter: 2007Q2

REPORT INFORMATION
  Report Type: 
  Country: None (occurrence: None)
  Receive Date: 20070427
  Receipt Date: 20070418
  Transmission Date: 20071010
  Serious: Yes (Hospitalization, Other)
  Sender: FDA-Public Use
  Company Number: HQWYE106102JAN07

PATIENT
  Sex: Male
  Weight: 65 kg

DRUGS (2)
  1. MYLOTARG [Suspect]
     Indication: ACUTE MYELOID LEUKAEMIA RECURRENT
     Route: 041
     Dates: start: 20060731, end: 20060731
  2. MYLOTARG [Suspect]
     Route: 041
     Dates: start: 20060828, end: 20060828

REACTIONS (4)
  - BRONCHOPULMONARY ASPERGILLOSIS [None]
  - FEBRILE NEUTROPENIA [None]
  - HYPERTENSION [None]
  - PULMONARY MYCOSIS [None]
